FAERS Safety Report 5638204-2 (Version None)
Quarter: 2008Q1

REPORT INFORMATION
  Report Type: 
  Country: None (occurrence: None)
  Receive Date: 20080131
  Receipt Date: 20071128
  Transmission Date: 20080703
  Serious: No
  Sender: FDA-Public Use
  Company Number: 163-21880-07111632

PATIENT
  Age: 61 Year
  Sex: Female

DRUGS (1)
  1. REVLIMID [Suspect]
     Indication: MULTIPLE MYELOMA
     Dosage: 20 MG, QD X21D OF 28D, ORAL
     Route: 048
     Dates: start: 20070530, end: 20071001

REACTIONS (1)
  - DISEASE PROGRESSION [None]
